FAERS Safety Report 25649962 (Version 1)
Quarter: 2025Q3

REPORT INFORMATION
  Report Type: Spontaneous
  Country: US (occurrence: None)
  Receive Date: 20250805
  Receipt Date: 20250805
  Transmission Date: 20251021
  Serious: No
  Sender: FDA-CTU
  Company Number: None

PATIENT
  Age: 66 Year
  Sex: Female
  Weight: 127.8 kg

DRUGS (36)
  1. FETZIMA [Suspect]
     Active Substance: LEVOMILNACIPRAN HYDROCHLORIDE
     Indication: Depression
     Route: 048
     Dates: start: 20250715, end: 20250805
  2. ALBUTEROL SULFATE [Concomitant]
     Active Substance: ALBUTEROL SULFATE
  3. MCG/ACT inhaler [Concomitant]
  4. OXYGEN [Concomitant]
     Active Substance: OXYGEN
  5. levomilnacipran hCl [Concomitant]
  6. MONTELUKAST [Concomitant]
     Active Substance: MONTELUKAST
  7. Cholecalciferol (VITAMIN D-3) [Concomitant]
  8. Calcium Carbonate-Vitamin D (CALTRATE 600+D PO) [Concomitant]
  9. CYCLOBENZAPRINE [Concomitant]
     Active Substance: CYCLOBENZAPRINE
  10. CEPHALEXIN [Concomitant]
     Active Substance: CEPHALEXIN
  11. MYRBETRIQ [Concomitant]
     Active Substance: MIRABEGRON
  12. CELECOXIB [Concomitant]
     Active Substance: CELECOXIB
  13. TRAMADOL [Concomitant]
     Active Substance: TRAMADOL
  14. MAGNESIUM HYDROXIDE [Concomitant]
     Active Substance: MAGNESIUM HYDROXIDE
  15. OMEPRAZOLE [Concomitant]
     Active Substance: OMEPRAZOLE
  16. NYSTATIN [Concomitant]
     Active Substance: NYSTATIN
  17. NYSTATIN [Concomitant]
     Active Substance: NYSTATIN
  18. LOVASTATIN [Concomitant]
     Active Substance: LOVASTATIN
  19. TRAZODONE [Concomitant]
     Active Substance: TRAZODONE HYDROCHLORIDE
  20. MAGNESIUM [Concomitant]
     Active Substance: MAGNESIUM
  21. GABAPENTIN [Concomitant]
     Active Substance: GABAPENTIN
  22. FERROUS SULFATE [Concomitant]
     Active Substance: FERROUS SULFATE
  23. ALBUTEROL [Concomitant]
     Active Substance: ALBUTEROL
  24. Cranberry (ELLURA PO) [Concomitant]
  25. FLUTICASONE PROPIONATE\SALMETEROL XINAFOATE [Concomitant]
     Active Substance: FLUTICASONE PROPIONATE\SALMETEROL XINAFOATE
  26. Aepb inhalation powder [Concomitant]
  27. PROPRANOLOL [Concomitant]
     Active Substance: PROPRANOLOL HYDROCHLORIDE
  28. FLUTICASONE PROPIONATE [Concomitant]
     Active Substance: FLUTICASONE PROPIONATE
  29. docusate sodium capsule [Concomitant]
  30. CETIRIZINE [Concomitant]
     Active Substance: CETIRIZINE HYDROCHLORIDE
  31. VITAMIN B12 [Concomitant]
     Active Substance: CYANOCOBALAMIN
  32. Probiotic Product (PROBIOTIC PO) [Concomitant]
  33. ASCORBIC ACID [Concomitant]
     Active Substance: ASCORBIC ACID
  34. Multiple Vitamins-Minerals (CENTRUM SILVER PO) [Concomitant]
  35. Omega-3 Fatty Acids (FISH OIL) [Concomitant]
  36. DRY EYE [Concomitant]

REACTIONS (10)
  - Palpitations [None]
  - Hot flush [None]
  - Hyperhidrosis [None]
  - Dysstasia [None]
  - Balance disorder [None]
  - Coordination abnormal [None]
  - Irritability [None]
  - Insomnia [None]
  - Agitation [None]
  - Crying [None]

NARRATIVE: CASE EVENT DATE: 20250805
